FAERS Safety Report 21959305 (Version 1)
Quarter: 2023Q1

REPORT INFORMATION
  Report Type: Spontaneous
  Country: US (occurrence: US)
  Receive Date: 20230206
  Receipt Date: 20230206
  Transmission Date: 20230417
  Serious: No
  Sender: FDA-Public Use
  Company Number: US-BRISTOL-MYERS SQUIBB COMPANY-2022-152235

PATIENT
  Age: 52 Year
  Sex: Male

DRUGS (1)
  1. SOTYKTU [Suspect]
     Active Substance: DEUCRAVACITINIB
     Indication: Psoriasis
     Route: 048

REACTIONS (6)
  - Dizziness [Unknown]
  - Tremor [Unknown]
  - Headache [Unknown]
  - Acne [Unknown]
  - Back disorder [Unknown]
  - Musculoskeletal discomfort [Unknown]
